FAERS Safety Report 5717390-X (Version None)
Quarter: 2008Q2

REPORT INFORMATION
  Report Type: 
  Country: None (occurrence: None)
  Receive Date: 20080425
  Receipt Date: 20080305
  Transmission Date: 20081010
  Serious: No
  Sender: FDA-Public Use
  Company Number: US-BAYER-200816720NA

PATIENT
  Sex: Female

DRUGS (2)
  1. MIRENA [Suspect]
     Indication: DRUG USE FOR UNKNOWN INDICATION
     Route: 015
     Dates: start: 20080131, end: 20080303
  2. MIRENA [Suspect]
     Route: 015
     Dates: start: 20080303

REACTIONS (2)
  - IUCD COMPLICATION [None]
  - MUSCLE SPASMS [None]
